FAERS Safety Report 9307922 (Version 1)
Quarter: 2013Q2

REPORT INFORMATION
  Report Type: Report from Study
  Country: US (occurrence: US)
  Receive Date: 20130524
  Receipt Date: 20130524
  Transmission Date: 20140414
  Serious: Yes (Other)
  Sender: FDA-Public Use
  Company Number: PHEH2013US011253

PATIENT
  Sex: Female

DRUGS (7)
  1. ZOMETA [Suspect]
     Dosage: 4 MG/ 5 ML VIAL
  2. REVLIMID [Suspect]
     Dosage: 5 MG, UNK
  3. ACYCLOVIR [Concomitant]
     Dosage: 200 MG, UNK
  4. METOPROLOL [Concomitant]
  5. LOVENOX [Concomitant]
  6. ALLOPURINOL [Concomitant]
     Dosage: 100 MG, UNK
  7. FOLIC ACID [Concomitant]
     Dosage: 1 MG, UNK

REACTIONS (2)
  - Infection [Unknown]
  - White blood cell count decreased [Unknown]
